FAERS Safety Report 24534809 (Version 2)
Quarter: 2024Q4

REPORT INFORMATION
  Report Type: Spontaneous
  Country: IN (occurrence: IN)
  Receive Date: 20241022
  Receipt Date: 20241101
  Transmission Date: 20250115
  Serious: Yes (Hospitalization, Other)
  Sender: BAUSCH AND LOMB
  Company Number: IN-MLMSERVICE-20241008-PI221370-00270-1

PATIENT
  Age: 5 Year
  Sex: Female

DRUGS (14)
  1. DEXAMETHASONE [Suspect]
     Active Substance: DEXAMETHASONE
     Indication: COVID-19
     Route: 065
  2. METHYLPREDNISOLONE [Suspect]
     Active Substance: METHYLPREDNISOLONE
     Indication: COVID-19
     Route: 065
  3. PREDNISOLONE [Concomitant]
     Active Substance: PREDNISOLONE
     Indication: Multisystem inflammatory syndrome
     Dosage: ONCE AT NIGHT
     Route: 065
  4. OXYGEN [Concomitant]
     Active Substance: OXYGEN
     Indication: COVID-19
     Route: 065
  5. OXYGEN [Concomitant]
     Active Substance: OXYGEN
     Indication: Multisystem inflammatory syndrome
  6. ASPIRIN [Concomitant]
     Active Substance: ASPIRIN
     Indication: Mitral valve incompetence
     Route: 065
  7. ASPIRIN [Concomitant]
     Active Substance: ASPIRIN
     Indication: Tricuspid valve incompetence
     Route: 065
  8. ASPIRIN [Concomitant]
     Active Substance: ASPIRIN
     Indication: Myocarditis
     Dosage: ONCE IN THE MORNING
     Route: 065
  9. ASPIRIN [Concomitant]
     Active Substance: ASPIRIN
     Route: 065
  10. PLATELETS [Concomitant]
     Active Substance: HUMAN PLATELET, ALLOGENIC
     Indication: Anaemia
     Dosage: 5 UNIT
     Route: 065
  11. PLATELETS [Concomitant]
     Active Substance: HUMAN PLATELET, ALLOGENIC
     Indication: Thrombocytopenia
  12. FRESH FROZEN PLASMA [Concomitant]
     Active Substance: HUMAN PLASMA
     Indication: Anaemia
     Dosage: 5 UNIT
     Route: 065
  13. FRESH FROZEN PLASMA [Concomitant]
     Active Substance: HUMAN PLASMA
     Indication: Thrombocytopenia
  14. VITAMIN K [Concomitant]
     Active Substance: PHYTONADIONE
     Indication: Product used for unknown indication
     Route: 065

REACTIONS (8)
  - Self-destructive behaviour [Unknown]
  - Osteonecrosis [Recovered/Resolved]
  - Osteomyelitis [Recovered/Resolved]
  - Tooth loss [Recovered/Resolved]
  - Psychotic disorder [Unknown]
  - Aggression [Unknown]
  - Hallucination, visual [Unknown]
  - Generalised oedema [Unknown]
